FAERS Safety Report 9348309 (Version 1)
Quarter: 2013Q2

REPORT INFORMATION
  Report Type: Spontaneous
  Country: US (occurrence: None)
  Receive Date: 20130613
  Receipt Date: 20130613
  Transmission Date: 20140414
  Serious: Yes (Death)
  Sender: FDA-Public Use
  Company Number: None

PATIENT
  Age: 62 Year
  Sex: Female

DRUGS (5)
  1. PROMACTA [Suspect]
     Indication: IDIOPATHIC THROMBOCYTOPENIC PURPURA
     Dosage: PROMACTA 50 MG DAILY ORALLY
     Route: 048
     Dates: start: 20130521, end: 20130604
  2. MYCOPHENOLATE [Concomitant]
  3. LISINOPRIL [Concomitant]
  4. DANAZOL [Concomitant]
  5. CLOBETASOL [Concomitant]

REACTIONS (2)
  - Coma [None]
  - Cerebral haematoma [None]
